FAERS Safety Report 6039448-0 (Version None)
Quarter: 2009Q1

REPORT INFORMATION
  Report Type: 
  Country: None (occurrence: None)
  Receive Date: 20090106
  Receipt Date: 20081223
  Transmission Date: 20090719
  Serious: No
  Sender: FDA-Public Use
  Company Number: WSDF_00778

PATIENT

DRUGS (1)
  1. WINRHO SDF [Suspect]
     Indication: IDIOPATHIC THROMBOCYTOPENIC PURPURA
     Dosage: 75 ?G/KG ONCE IV
     Route: 042

REACTIONS (4)
  - HAEMOGLOBIN DECREASED [None]
  - HEADACHE [None]
  - PYREXIA [None]
  - VOMITING [None]
